FAERS Safety Report 8849155 (Version 1)
Quarter: 2012Q4

REPORT INFORMATION
  Report Type: Spontaneous
  Country: US (occurrence: None)
  Receive Date: 20121017
  Receipt Date: 20121017
  Transmission Date: 20130627
  Serious: Yes (Other)
  Sender: FDA-Public Use
  Company Number: None

PATIENT
  Age: 34 Year
  Sex: Female
  Weight: 81.65 kg

DRUGS (1)
  1. NUVIGIL [Suspect]
     Indication: SLEEPINESS
     Route: 048
     Dates: start: 20120930, end: 20121004

REACTIONS (4)
  - Dysphonia [None]
  - Throat tightness [None]
  - Swollen tongue [None]
  - Lip swelling [None]
